FAERS Safety Report 9910174 (Version 1)
Quarter: 2014Q1

REPORT INFORMATION
  Report Type: Spontaneous
  Country: US (occurrence: US)
  Receive Date: 20140219
  Receipt Date: 20140219
  Transmission Date: 20141002
  Serious: No
  Sender: FDA-Public Use
  Company Number: US-GILEAD-2012-0055673

PATIENT
  Sex: Female

DRUGS (4)
  1. LETAIRIS [Suspect]
     Indication: PRODUCT USED FOR UNKNOWN INDICATION
     Dosage: 10 MG, UNK
     Route: 048
  2. LETAIRIS [Suspect]
     Dosage: UNK MG, UNK
     Route: 048
     Dates: start: 201109
  3. NEXIUM                             /01479302/ [Concomitant]
  4. PREDNISONE [Concomitant]

REACTIONS (1)
  - Urticaria [Unknown]
